FAERS Safety Report 6038973-6 (Version None)
Quarter: 2009Q1

REPORT INFORMATION
  Report Type: 
  Country: None (occurrence: None)
  Receive Date: 20090115
  Receipt Date: 20090106
  Transmission Date: 20090719
  Serious: Yes (Life-Threatening, Hospitalization, Disabling)
  Sender: FDA-Public Use
  Company Number: US-MERCK-0811USA00685

PATIENT
  Age: 6 Year
  Sex: Female
  Weight: 24 kg

DRUGS (4)
  1. SINGULAIR [Suspect]
     Indication: RHINITIS ALLERGIC
     Route: 048
     Dates: start: 20081001, end: 20081001
  2. SINGULAIR [Suspect]
     Route: 048
  3. GASTROINTESTINAL PREPARATIONS (UNSPECIFIED) [Concomitant]
     Indication: CONSTIPATION
     Route: 048
  4. BACTRIM [Suspect]
     Indication: PROPHYLAXIS
     Route: 048
     Dates: start: 20081001

REACTIONS (6)
  - AMNESIA [None]
  - DRUG HYPERSENSITIVITY [None]
  - MUSCLE SPASMS [None]
  - MYOSITIS [None]
  - RESPIRATORY FAILURE [None]
  - STATUS EPILEPTICUS [None]
